APPROVED DRUG PRODUCT: TERIFLUNOMIDE
Active Ingredient: TERIFLUNOMIDE
Strength: 14MG
Dosage Form/Route: TABLET;ORAL
Application: A209677 | Product #001 | TE Code: AB
Applicant: SOLA PHARMACEUTICALS
Approved: Jun 17, 2020 | RLD: No | RS: No | Type: RX